FAERS Safety Report 23802453 (Version 1)
Quarter: 2024Q2

REPORT INFORMATION
  Report Type: Spontaneous
  Country: JP (occurrence: JP)
  Receive Date: 20240501
  Receipt Date: 20240501
  Transmission Date: 20240717
  Serious: Yes (Hospitalization, Other)
  Sender: FDA-Public Use
  Company Number: JP-GILEAD-2024-0670545

PATIENT
  Age: 62 Year
  Sex: Female

DRUGS (2)
  1. AMPHOTERICIN B [Suspect]
     Active Substance: AMPHOTERICIN B
     Indication: Pulmonary mucormycosis
     Dosage: UNK UNK, UNKNOWN FREQ.
     Route: 065
     Dates: start: 2022, end: 2022
  2. FILGOTINIB [Suspect]
     Active Substance: FILGOTINIB
     Indication: Rheumatoid arthritis
     Dosage: UNK UNK, UNKNOWN FREQ.
     Route: 048
     Dates: start: 202108, end: 2022

REACTIONS (6)
  - Pleurisy [Unknown]
  - Immunodeficiency common variable [Unknown]
  - Pneumonia bacterial [Recovering/Resolving]
  - Pulmonary mucormycosis [Recovering/Resolving]
  - Renal disorder [Unknown]
  - Nausea [Unknown]

NARRATIVE: CASE EVENT DATE: 20220101
